FAERS Safety Report 13923271 (Version 1)
Quarter: 2017Q3

REPORT INFORMATION
  Report Type: Spontaneous
  Country: US (occurrence: None)
  Receive Date: 20170830
  Receipt Date: 20170830
  Transmission Date: 20171127
  Serious: Yes (Hospitalization)
  Sender: FDA-Public Use
  Company Number: None

PATIENT
  Age: 58 Year
  Sex: Male
  Weight: 143.34 kg

DRUGS (1)
  1. TALTZ [Suspect]
     Active Substance: IXEKIZUMAB
     Indication: PYODERMA GANGRENOSUM
     Route: 058
     Dates: start: 20170812, end: 20170817

REACTIONS (9)
  - Diarrhoea [None]
  - Sepsis [None]
  - Pseudomonas test positive [None]
  - Culture wound positive [None]
  - Staphylococcal infection [None]
  - Pyrexia [None]
  - Hypotension [None]
  - Skin wound [None]
  - Chills [None]

NARRATIVE: CASE EVENT DATE: 20170825
